FAERS Safety Report 21031729 (Version 1)
Quarter: 2022Q3

REPORT INFORMATION
  Report Type: Other
  Country: US (occurrence: None)
  Receive Date: 20220701
  Receipt Date: 20220701
  Transmission Date: 20221027
  Serious: No
  Sender: FDA-Public Use
  Company Number: US-MLMSERVICE-20211013-3162389-1

PATIENT
  Age: 67 Year
  Sex: Male

DRUGS (11)
  1. TOCILIZUMAB [Suspect]
     Active Substance: TOCILIZUMAB
     Indication: Haemophagocytic lymphohistiocytosis
     Route: 065
  2. PREDNISONE [Concomitant]
     Active Substance: PREDNISONE
  3. TACROLIMUS [Concomitant]
     Active Substance: TACROLIMUS
  4. MYCOPHENOLIC ACID [Concomitant]
     Active Substance: MYCOPHENOLIC ACID
     Dosage: ON REDUCED DOSE
  5. MYCOPHENOLIC ACID [Concomitant]
     Active Substance: MYCOPHENOLIC ACID
  6. REMDESIVIR [Concomitant]
     Active Substance: REMDESIVIR
  7. METHYLPREDNISOLONE [Concomitant]
     Active Substance: METHYLPREDNISOLONE
  8. HEPARIN [Concomitant]
     Active Substance: HEPARIN SODIUM
  9. DEXAMETHASONE [Concomitant]
     Active Substance: DEXAMETHASONE
  10. GANCICLOVIR [Concomitant]
     Active Substance: GANCICLOVIR
  11. NITRIC OXIDE [Concomitant]
     Active Substance: NITRIC OXIDE

REACTIONS (2)
  - Off label use [Unknown]
  - No adverse event [Unknown]
